FAERS Safety Report 8840705 (Version 4)
Quarter: 2013Q2

REPORT INFORMATION
  Report Type: Spontaneous
  Country: FR (occurrence: FR)
  Receive Date: 20121015
  Receipt Date: 20130515
  Transmission Date: 20140414
  Serious: Yes (Hospitalization)
  Sender: FDA-Public Use
  Company Number: FR-PFIZER INC-2012251519

PATIENT
  Sex: Female
  Weight: 1.63 kg

DRUGS (20)
  1. TAZOCILLINE [Suspect]
     Dosage: UNK
     Route: 064
     Dates: start: 20120316, end: 20120320
  2. PROPOFOL [Suspect]
     Dosage: UNK
     Route: 064
     Dates: start: 20120310, end: 20120316
  3. HYPNOVEL [Suspect]
     Dosage: UNK
     Route: 064
     Dates: start: 20120304, end: 20120323
  4. SUFENTA [Suspect]
     Dosage: UNK
     Route: 064
     Dates: start: 20120304, end: 20120323
  5. ATRACURIUM [Suspect]
     Dosage: UNK
     Route: 064
     Dates: start: 20120304, end: 201203
  6. CELESTENE [Suspect]
     Dosage: UNK
     Route: 064
     Dates: start: 20120316, end: 20120317
  7. CELESTENE [Suspect]
     Dosage: UNK
     Dates: start: 20120424, end: 20120425
  8. KETAMINE [Suspect]
     Dosage: UNK
     Route: 064
     Dates: start: 20120317, end: 20120320
  9. PERFALGAN [Suspect]
     Dosage: 1 G, AS NEEDED
     Route: 064
     Dates: start: 20120324, end: 20120325
  10. TRACTOCILE [Suspect]
     Dosage: 1 VIAL
     Route: 064
     Dates: start: 20120324, end: 20120326
  11. ZOPHREN [Suspect]
     Dosage: 4 MG, 3X/DAY
     Route: 064
     Dates: start: 20120321, end: 20120324
  12. INEXIUM [Suspect]
     Dosage: 40 MG, 1X/DAY
     Route: 064
     Dates: start: 20120319, end: 20120325
  13. LOVENOX [Suspect]
     Dosage: 40 ONCE DAILY
     Route: 064
     Dates: start: 20120304, end: 20120426
  14. CLINOMEL [Suspect]
     Dosage: 1500 ML PER DAY
     Route: 064
     Dates: start: 20120326
  15. AMOXICILIN [Suspect]
     Dosage: UNK
     Route: 064
     Dates: start: 20120304, end: 20120316
  16. KABIVEN [Suspect]
     Dosage: UNK
     Route: 064
     Dates: start: 20120304, end: 20120316
  17. CEFTRIAXONE [Suspect]
     Dosage: UNK
     Route: 064
     Dates: start: 20120304, end: 20120311
  18. FUMAFER [Suspect]
     Dosage: UNK
     Route: 064
     Dates: start: 20120304, end: 20120316
  19. TAMIFLU [Suspect]
     Dosage: UNK
     Route: 064
     Dates: start: 20120310, end: 20120316
  20. RULID [Suspect]
     Dosage: UNK
     Route: 064
     Dates: start: 20120310, end: 20120316

REACTIONS (3)
  - Maternal exposure timing unspecified [Recovering/Resolving]
  - Foetal growth restriction [Recovering/Resolving]
  - Cerebral haemorrhage [Recovered/Resolved]
